FAERS Safety Report 12578571 (Version 2)
Quarter: 2016Q3

REPORT INFORMATION
  Report Type: Report from Study
  Country: US (occurrence: US)
  Receive Date: 20160721
  Receipt Date: 20160906
  Transmission Date: 20161109
  Serious: Yes (Hospitalization, Other)
  Sender: FDA-Public Use
  Company Number: US-AMGEN-USASL2016093374

PATIENT
  Age: 55 Year
  Sex: Female

DRUGS (2)
  1. CIMZIA [Concomitant]
     Active Substance: CERTOLIZUMAB PEGOL
     Dosage: UNK
  2. ENBREL [Suspect]
     Active Substance: ETANERCEPT
     Indication: PSORIATIC ARTHROPATHY
     Dosage: UNK UNK, TWICE A WEEK
     Route: 065
     Dates: start: 2011

REACTIONS (14)
  - Haemangioma [Unknown]
  - Clostridium difficile infection [Unknown]
  - Pain [Unknown]
  - Renal failure [Unknown]
  - Sepsis [Unknown]
  - Gastroenteritis viral [Unknown]
  - Abscess [Unknown]
  - Pyrexia [Unknown]
  - Lymphoma [Unknown]
  - Loss of consciousness [Unknown]
  - Mobility decreased [Unknown]
  - Hospitalisation [Unknown]
  - Psoriatic arthropathy [Unknown]
  - Drug ineffective [Unknown]

NARRATIVE: CASE EVENT DATE: 2014
